FAERS Safety Report 15954161 (Version 2)
Quarter: 2019Q1

REPORT INFORMATION
  Report Type: Report from Study
  Country: US (occurrence: US)
  Receive Date: 20190212
  Receipt Date: 20190222
  Transmission Date: 20190417
  Serious: Yes (Life-Threatening, Hospitalization)
  Sender: FDA-Public Use
  Company Number: US-ACTELION-A-NJ2019-186082

PATIENT
  Age: 76 Year
  Sex: Female

DRUGS (21)
  1. FLONASE [Concomitant]
     Active Substance: FLUTICASONE PROPIONATE
     Dosage: 50 MCG/ACT EACH NOSTRIL ONCE DAILY AT BEDTIME
  2. GABAPENTIN. [Concomitant]
     Active Substance: GABAPENTIN
     Dosage: 300 MG
  3. ZANAFLEX [Concomitant]
     Active Substance: TIZANIDINE HYDROCHLORIDE
     Dosage: 4 MG BID
     Route: 048
  4. OPSUMIT [Suspect]
     Active Substance: MACITENTAN
     Indication: PULMONARY ARTERIAL HYPERTENSION
     Dosage: 10 MG, QD
     Route: 048
     Dates: start: 201404
  5. LOSARTAN. [Concomitant]
     Active Substance: LOSARTAN
     Dosage: 25 MG, QD
  6. HYDROCODONE/ACETAMINOPHEN [Concomitant]
     Active Substance: ACETAMINOPHEN\HYDROCODONE
     Dosage: 10-325MG UP TO 3 TIMES AS NEEDED
     Route: 048
  7. LASIX [Concomitant]
     Active Substance: FUROSEMIDE
     Dosage: 40 MG, QD
     Route: 048
  8. OXYCODONE [Concomitant]
     Active Substance: OXYCODONE
     Dosage: 36 MG, BID
     Route: 048
  9. OXYCODONE [Concomitant]
     Active Substance: OXYCODONE
     Dosage: 27 MG, Q12HRS
     Route: 048
  10. LIDOCAINE. [Concomitant]
     Active Substance: LIDOCAINE
     Dosage: 5 %, UNK
     Route: 062
  11. CARVEDILOL. [Concomitant]
     Active Substance: CARVEDILOL
  12. ASPIRIN. [Concomitant]
     Active Substance: ASPIRIN
     Dosage: 325 MG, QD
     Route: 048
  13. ZANAFLEX [Concomitant]
     Active Substance: TIZANIDINE HYDROCHLORIDE
     Dosage: 4 MG (1/2 TABLET AS NEEDED)
     Route: 048
  14. NIASPAN [Concomitant]
     Active Substance: NIACIN
     Dosage: 750 MG, BID
     Route: 048
  15. FLONASE [Concomitant]
     Active Substance: FLUTICASONE PROPIONATE
     Dosage: 50 MCG/ACT 2 SPRAY IN EACH NOSTRIL QD
  16. OXYGEN. [Concomitant]
     Active Substance: OXYGEN
  17. LEVOTHYROXINE SODIUM. [Concomitant]
     Active Substance: LEVOTHYROXINE SODIUM
     Dosage: 137 MCG, QD
  18. COREG [Concomitant]
     Active Substance: CARVEDILOL
     Dosage: 3.125 MG, BID
     Route: 048
  19. LOSARTAN POTASSIUM. [Concomitant]
     Active Substance: LOSARTAN POTASSIUM
     Dosage: 25 MG, QD
     Route: 048
  20. LISINOPRIL. [Concomitant]
     Active Substance: LISINOPRIL
  21. ZANAFLEX [Concomitant]
     Active Substance: TIZANIDINE HYDROCHLORIDE
     Dosage: 4 MG QD AT BEDTIME
     Route: 048

REACTIONS (17)
  - Hypotension [Recovered/Resolved]
  - Nasopharyngitis [Unknown]
  - Hyperlipidaemia [Unknown]
  - Bundle branch block left [Unknown]
  - Pain [Unknown]
  - Renal failure [Unknown]
  - Vomiting [Unknown]
  - Stress [Unknown]
  - Heart rate decreased [Unknown]
  - Multiple organ dysfunction syndrome [Unknown]
  - Acute kidney injury [Recovered/Resolved]
  - Left ventricular failure [Unknown]
  - Carotid artery disease [Unknown]
  - Nausea [Unknown]
  - Cough [Unknown]
  - Urinary tract infection [Recovered/Resolved]
  - Upper respiratory tract infection [Unknown]

NARRATIVE: CASE EVENT DATE: 20181228
